FAERS Safety Report 11326448 (Version 1)
Quarter: 2015Q3

REPORT INFORMATION
  Report Type: Spontaneous
  Country: US (occurrence: US)
  Receive Date: 20150731
  Receipt Date: 20150731
  Transmission Date: 20151125
  Serious: Yes (Other)
  Sender: FDA-Public Use
  Company Number: US-THE MEDICINES COMPANY-US-MDCO-15-00368

PATIENT
  Age: 31 Year
  Sex: Male

DRUGS (2)
  1. ARGATROBAN. [Suspect]
     Active Substance: ARGATROBAN
     Indication: ANTICOAGULANT THERAPY
     Dosage: NOT REPORTED
  2. HEPARIN [Suspect]
     Active Substance: HEPARIN SODIUM
     Indication: ANTICOAGULANT THERAPY
     Dosage: NOT REPORTED

REACTIONS (4)
  - Cardiac ventricular thrombosis [Recovering/Resolving]
  - Pulmonary artery thrombosis [Recovering/Resolving]
  - Aortic thrombosis [Recovering/Resolving]
  - Drug ineffective [Recovering/Resolving]
